FAERS Safety Report 5343426-4 (Version None)
Quarter: 2007Q2

REPORT INFORMATION
  Report Type: 
  Country: None (occurrence: None)
  Receive Date: 20070531
  Receipt Date: 20070518
  Transmission Date: 20071010
  Serious: Yes (Hospitalization, Other)
  Sender: FDA-Public Use
  Company Number: 6021739

PATIENT
  Age: 73 Year
  Sex: Male

DRUGS (8)
  1. DIANBEN (850 MG, TABLET) (METFORMIN) [Suspect]
     Indication: DIABETES MELLITUS
     Dosage: 2550 MG (850 MG, 3 IN 1 D), ORAL
     Route: 048
     Dates: start: 20051228, end: 20060110
  2. ENALAPRIL MALEATE [Concomitant]
  3. CLOPIDOGREL [Concomitant]
  4. SIMVASTATIN [Concomitant]
  5. CLOMETHIAZOLE (CLOMETHIAZOLE) [Concomitant]
  6. HALOPERIDOL [Concomitant]
  7. ENOXAPRIN SODIUM (ENOXAPARIN SODIUM) [Concomitant]
  8. INSULIN (INSULIN) [Concomitant]

REACTIONS (9)
  - BLOOD PRESSURE DECREASED [None]
  - HYPERCALCAEMIA [None]
  - HYPOPERFUSION [None]
  - LACTIC ACIDOSIS [None]
  - LOSS OF CONSCIOUSNESS [None]
  - OXYGEN SATURATION DECREASED [None]
  - PNEUMONIA ASPIRATION [None]
  - RENAL IMPAIRMENT [None]
  - SHOCK [None]
